FAERS Safety Report 6048338-9 (Version None)
Quarter: 2009Q1

REPORT INFORMATION
  Report Type: 
  Country: None (occurrence: None)
  Receive Date: 20090123
  Receipt Date: 20090112
  Transmission Date: 20090719
  Serious: Yes (Death, Life-Threatening)
  Sender: FDA-Public Use
  Company Number: DE-PFIZER INC-2008097743

PATIENT

DRUGS (10)
  1. TOVIAZ [Suspect]
     Indication: AUTOMATIC BLADDER
     Dosage: 4 MG, 2X/DAY
     Route: 048
     Dates: start: 20081031
  2. TOVIAZ [Suspect]
     Dosage: 4 MG, 1X/DAY
     Route: 048
     Dates: start: 20081014, end: 20081030
  3. DELIX [Concomitant]
     Indication: HYPERTENSION
     Dosage: 5 MG, 1X/DAY
     Route: 048
     Dates: start: 20020101, end: 20080101
  4. SAROTEN [Concomitant]
     Indication: DEPRESSION
     Dosage: UNK
     Dates: start: 20020101
  5. TRAMADOL HCL [Concomitant]
     Indication: PAIN
     Dosage: 50 MG, 2X/DAY
  6. PANTOZOL [Concomitant]
     Indication: GASTRITIS
     Dosage: 40 MG, 1X/DAY
  7. AMARYL [Concomitant]
     Indication: TYPE 2 DIABETES MELLITUS
     Dosage: 2 MG, 1X/DAY
  8. ESIDRIX [Concomitant]
     Indication: HYPERTENSION
     Dosage: 12.5 MG, 1X/DAY
  9. FERRLECIT [Concomitant]
     Dosage: UNK
  10. CIPROFLOXACIN [Concomitant]
     Dosage: 500 MG, 1X/DAY
     Route: 048
     Dates: start: 20081103

REACTIONS (1)
  - DEATH [None]
